FAERS Safety Report 21286093 (Version 2)
Quarter: 2022Q3

REPORT INFORMATION
  Report Type: Spontaneous
  Country: IN (occurrence: IN)
  Receive Date: 20220902
  Receipt Date: 20220909
  Transmission Date: 20221027
  Serious: Yes (Other)
  Sender: FDA-Public Use
  Company Number: IN-KOREA IPSEN Pharma-2022-24715

PATIENT
  Sex: Male

DRUGS (1)
  1. BOTULINUM TOXIN TYPE A [Suspect]
     Active Substance: BOTULINUM TOXIN TYPE A
     Indication: Neurogenic bladder
     Dosage: 300 IU
     Route: 043

REACTIONS (2)
  - Vesicocutaneous fistula [Unknown]
  - Joint fluid drainage [Unknown]
